FAERS Safety Report 24012707 (Version 1)
Quarter: 2024Q2

REPORT INFORMATION
  Report Type: Spontaneous
  Country: AU (occurrence: AU)
  Receive Date: 20240626
  Receipt Date: 20240626
  Transmission Date: 20240716
  Serious: Yes (Other)
  Sender: FDA-Public Use
  Company Number: AU-BRISTOL-MYERS SQUIBB COMPANY-2024-098525

PATIENT
  Age: 69 Year
  Sex: Male

DRUGS (3)
  1. DASATINIB [Suspect]
     Active Substance: DASATINIB
     Indication: Chronic myeloid leukaemia
     Dates: start: 201205
  2. DASATINIB [Suspect]
     Active Substance: DASATINIB
     Dates: start: 201512, end: 201605
  3. DASATINIB [Suspect]
     Active Substance: DASATINIB
     Dates: start: 201605, end: 201706

REACTIONS (4)
  - Aortic stenosis [Unknown]
  - Cytomegalovirus colitis [Unknown]
  - Pulmonary hypertension [Unknown]
  - Pleural effusion [Unknown]

NARRATIVE: CASE EVENT DATE: 20130501
